FAERS Safety Report 10464716 (Version 6)
Quarter: 2015Q1

REPORT INFORMATION
  Report Type: Spontaneous
  Country: US (occurrence: US)
  Receive Date: 20140919
  Receipt Date: 20150220
  Transmission Date: 20150720
  Serious: Yes (Hospitalization, Other)
  Sender: FDA-Public Use
  Company Number: US-ASTELLAS-2014US012799

PATIENT
  Sex: Male

DRUGS (9)
  1. TARCEVA [Suspect]
     Active Substance: ERLOTINIB HYDROCHLORIDE
     Route: 048
     Dates: start: 20140904
  2. WARFARIN [Concomitant]
     Active Substance: WARFARIN
     Indication: PRODUCT USED FOR UNKNOWN INDICATION
     Dosage: UNK, UNKNOWN FREQ.
     Route: 048
  3. TARCEVA [Suspect]
     Active Substance: ERLOTINIB HYDROCHLORIDE
     Route: 048
     Dates: start: 20140913
  4. LABETALOL [Concomitant]
     Active Substance: LABETALOL\LABETALOL HYDROCHLORIDE
     Indication: PRODUCT USED FOR UNKNOWN INDICATION
     Route: 048
  5. METOPROLOL [Concomitant]
     Active Substance: METOPROLOL
     Indication: PRODUCT USED FOR UNKNOWN INDICATION
     Dosage: UNK, UNKNOWN FREQ.
     Route: 065
  6. TARCEVA [Suspect]
     Active Substance: ERLOTINIB HYDROCHLORIDE
     Indication: LUNG NEOPLASM MALIGNANT
     Route: 048
     Dates: start: 20140707
  7. LOSARTAN [Concomitant]
     Active Substance: LOSARTAN
     Indication: PRODUCT USED FOR UNKNOWN INDICATION
     Route: 065
  8. FLECAINIDE [Concomitant]
     Active Substance: FLECAINIDE
     Indication: PRODUCT USED FOR UNKNOWN INDICATION
     Route: 048
  9. TARCEVA [Suspect]
     Active Substance: ERLOTINIB HYDROCHLORIDE
     Route: 048
     Dates: start: 20140708

REACTIONS (20)
  - Rash generalised [Unknown]
  - Dysgeusia [Unknown]
  - Erythema [Unknown]
  - Nausea [Unknown]
  - Cough [Unknown]
  - Rash macular [Unknown]
  - Dry mouth [Not Recovered/Not Resolved]
  - Skin ulcer [Not Recovered/Not Resolved]
  - Cardiac disorder [Unknown]
  - Ageusia [Unknown]
  - Sunburn [Unknown]
  - Dizziness [Unknown]
  - Diarrhoea [Unknown]
  - Decreased appetite [Unknown]
  - Skin exfoliation [Unknown]
  - Dry skin [Unknown]
  - Blood pressure decreased [Unknown]
  - Dry skin [Not Recovered/Not Resolved]
  - Dry mouth [Unknown]
  - Rash [Unknown]
